FAERS Safety Report 8823079 (Version 1)
Quarter: 2012Q4

REPORT INFORMATION
  Report Type: 
  Country: AT (occurrence: AT)
  Receive Date: 20121003
  Receipt Date: 20121003
  Transmission Date: 20130627
  Serious: Yes (Other)
  Sender: FDA-Public Use
  Company Number: PHHY2012AT065092

PATIENT
  Age: 71 Year
  Sex: Male

DRUGS (5)
  1. RAMIPRIL [Suspect]
     Dosage: 1.25 mg, UNK
     Route: 048
  2. SIMVASTATIN [Suspect]
     Dosage: 80 mg, daily
     Route: 048
  3. DANCOR [Suspect]
     Route: 048
  4. PLAVIX [Suspect]
     Route: 048
  5. NOMEXOR [Suspect]
     Route: 048

REACTIONS (5)
  - Dementia [Not Recovered/Not Resolved]
  - Amnesia [Not Recovered/Not Resolved]
  - Depression [Not Recovered/Not Resolved]
  - Asthenia [Not Recovered/Not Resolved]
  - Muscular weakness [Not Recovered/Not Resolved]
